FAERS Safety Report 7639823-4 (Version None)
Quarter: 2011Q3

REPORT INFORMATION
  Report Type: 
  Country: None (occurrence: None)
  Receive Date: 20110727
  Receipt Date: 20110719
  Transmission Date: 20111222
  Serious: Yes (Hospitalization)
  Sender: FDA-Public Use
  Company Number: US-ABBOTT-11P-163-0840109-00

PATIENT
  Sex: Male
  Weight: 66.738 kg

DRUGS (6)
  1. PROZAC [Concomitant]
     Indication: MOOD SWINGS
     Route: 048
     Dates: start: 20060101
  2. NEXIUM [Concomitant]
     Indication: GASTROOESOPHAGEAL REFLUX DISEASE
     Route: 048
  3. AMBIEN [Concomitant]
     Indication: RESTLESSNESS
     Route: 048
  4. ENTOCORT EC [Concomitant]
     Indication: CROHN'S DISEASE
     Route: 048
  5. HUMIRA [Suspect]
     Indication: CROHN'S DISEASE
     Route: 058
     Dates: start: 20110101
  6. PREDNISONE [Suspect]
     Indication: CROHN'S DISEASE
     Route: 048
     Dates: start: 20110701

REACTIONS (3)
  - MOOD SWINGS [None]
  - ASTHENIA [None]
  - CROHN'S DISEASE [None]
